FAERS Safety Report 21793864 (Version 1)
Quarter: 2022Q4

REPORT INFORMATION
  Report Type: Spontaneous
  Country: US (occurrence: US)
  Receive Date: 20221229
  Receipt Date: 20221229
  Transmission Date: 20230113
  Serious: Yes (Hospitalization, Other)
  Sender: FDA-Public Use
  Company Number: US-BAUSCH-BL-2022-028106

PATIENT
  Age: 40 Year
  Sex: Female
  Weight: 44.492 kg

DRUGS (1)
  1. METRONIDAZOLE [Suspect]
     Active Substance: METRONIDAZOLE
     Indication: Bacterial vaginosis
     Dosage: ONE APPLICATION VAGINALLY TWICE DAILY
     Route: 067
     Dates: start: 20221013, end: 20221020

REACTIONS (10)
  - Abortion spontaneous [Unknown]
  - Vaginal haemorrhage [Unknown]
  - Uterine cervical pain [Unknown]
  - Dysgeusia [Unknown]
  - Confusional state [Unknown]
  - Dizziness [Unknown]
  - Nausea [Unknown]
  - Drug ineffective [Unknown]
  - Maternal exposure during pregnancy [Unknown]
  - Product use issue [Unknown]

NARRATIVE: CASE EVENT DATE: 20221001
